FAERS Safety Report 11124604 (Version 4)
Quarter: 2016Q3

REPORT INFORMATION
  Report Type: Spontaneous
  Country: GB (occurrence: GB)
  Receive Date: 20150520
  Receipt Date: 20160701
  Transmission Date: 20161109
  Serious: Yes (Other)
  Sender: FDA-Public Use
  Company Number: GB-JNJFOC-20150511199

PATIENT
  Sex: Female

DRUGS (1)
  1. SIMPONI [Suspect]
     Active Substance: GOLIMUMAB
     Indication: ARTHRITIS
     Route: 058

REACTIONS (5)
  - Foot deformity [Unknown]
  - Epilepsy [Unknown]
  - Trigeminal neuralgia [Not Recovered/Not Resolved]
  - Sinusitis [Unknown]
  - Injection site bruising [Recovering/Resolving]
